FAERS Safety Report 10771663 (Version 1)
Quarter: 2015Q1

REPORT INFORMATION
  Report Type: Spontaneous
  Country: US (occurrence: PR)
  Receive Date: 20150206
  Receipt Date: 20150206
  Transmission Date: 20150721
  Serious: Yes (Other)
  Sender: FDA-Public Use
  Company Number: US-TEVA-539226USA

PATIENT
  Sex: Female

DRUGS (1)
  1. COPAXONE [Suspect]
     Active Substance: GLATIRAMER ACETATE
     Indication: MULTIPLE SCLEROSIS
     Dosage: UNKNOWN DOSAGE

REACTIONS (10)
  - Hyperhidrosis [Unknown]
  - Visual impairment [Unknown]
  - Immediate post-injection reaction [Unknown]
  - Erythema [Unknown]
  - Tremor [Unknown]
  - Feeling cold [Unknown]
  - Dyspnoea [Unknown]
  - Nausea [Unknown]
  - Abasia [Unknown]
  - Vomiting [Unknown]
